FAERS Safety Report 12723436 (Version 6)
Quarter: 2017Q2

REPORT INFORMATION
  Report Type: Spontaneous
  Country: US (occurrence: US)
  Receive Date: 20160908
  Receipt Date: 20170424
  Transmission Date: 20170830
  Serious: Yes (Other)
  Sender: FDA-Public Use
  Company Number: PHHY2016US123803

PATIENT
  Sex: Female
  Weight: 95.69 kg

DRUGS (1)
  1. ZOFRAN [Suspect]
     Active Substance: ONDANSETRON HYDROCHLORIDE
     Indication: VOMITING IN PREGNANCY
     Dosage: UNK
     Route: 048
     Dates: start: 200601

REACTIONS (15)
  - Nasal turbinate hypertrophy [Unknown]
  - Ligament sprain [Unknown]
  - Menorrhagia [Unknown]
  - Haemorrhoids [Unknown]
  - Anxiety [Unknown]
  - Maternal exposure during pregnancy [Unknown]
  - Musculoskeletal pain [Unknown]
  - Iron deficiency anaemia [Unknown]
  - Pain in extremity [Unknown]
  - Facial bones fracture [Unknown]
  - Emotional distress [Unknown]
  - Neck pain [Unknown]
  - Arthralgia [Unknown]
  - Nasal septum disorder [Unknown]
  - Product use in unapproved indication [Unknown]
